FAERS Safety Report 17219957 (Version 1)
Quarter: 2019Q4

REPORT INFORMATION
  Report Type: Spontaneous
  Country: IT (occurrence: IT)
  Receive Date: 20191231
  Receipt Date: 20191231
  Transmission Date: 20200122
  Serious: Yes (Hospitalization, Other)
  Sender: FDA-Public Use
  Company Number: IT-AMGEN-ITASP2019215080

PATIENT

DRUGS (1)
  1. CINACALCET HCL [Suspect]
     Active Substance: CINACALCET HYDROCHLORIDE
     Indication: HYPERPARATHYROIDISM SECONDARY
     Dosage: UNK
     Route: 065

REACTIONS (6)
  - End stage renal disease [Unknown]
  - Implantation complication [Unknown]
  - Complication associated with device [Unknown]
  - Chronic kidney disease [Unknown]
  - Graft complication [Unknown]
  - Treatment noncompliance [Unknown]
